FAERS Safety Report 12406595 (Version 1)
Quarter: 2016Q2

REPORT INFORMATION
  Report Type: Spontaneous
  Country: US (occurrence: US)
  Receive Date: 20160526
  Receipt Date: 20160526
  Transmission Date: 20160815
  Serious: No
  Sender: FDA-Public Use
  Company Number: US-TEVA-662054ACC

PATIENT
  Sex: Female

DRUGS (1)
  1. PARAGARD T 380A [Suspect]
     Active Substance: COPPER
     Indication: CONTRACEPTION
     Dates: start: 200601, end: 201601

REACTIONS (4)
  - Uterine scar [Unknown]
  - Embedded device [Recovered/Resolved]
  - Device breakage [Unknown]
  - Complication associated with device [Not Recovered/Not Resolved]
